FAERS Safety Report 24744784 (Version 1)
Quarter: 2024Q4

REPORT INFORMATION
  Report Type: Spontaneous
  Country: TR (occurrence: TR)
  Receive Date: 20241217
  Receipt Date: 20241217
  Transmission Date: 20250114
  Serious: Yes (Hospitalization, Other)
  Sender: ABBVIE
  Company Number: TR-ABBVIE-6042684

PATIENT
  Age: 40 Year
  Sex: Female

DRUGS (8)
  1. MEMANTINE [Suspect]
     Active Substance: MEMANTINE
     Indication: Niemann-Pick disease
     Dosage: TITRATING THE DOSE UP TO 20 MG/DAY (DAY 35)
     Route: 065
  2. CLOZAPINE [Suspect]
     Active Substance: CLOZAPINE
     Indication: Niemann-Pick disease
     Dosage: 37.5 MG/DAY (DAY 69)
     Route: 065
  3. LORAZEPAM [Suspect]
     Active Substance: LORAZEPAM
     Indication: Niemann-Pick disease
  4. LORAZEPAM [Suspect]
     Active Substance: LORAZEPAM
     Indication: Niemann-Pick disease
  5. LORAZEPAM [Suspect]
     Active Substance: LORAZEPAM
     Indication: Niemann-Pick disease
  6. MIGLUSTAT [Concomitant]
     Active Substance: MIGLUSTAT
     Indication: Niemann-Pick disease
     Route: 065
  7. HALOPERIDOL [Concomitant]
     Active Substance: HALOPERIDOL
     Indication: Agitation
     Route: 030
  8. BIPERIDEN [Concomitant]
     Active Substance: BIPERIDEN
     Indication: Antipsychotic therapy
     Route: 030

REACTIONS (3)
  - Neuroleptic malignant syndrome [Unknown]
  - Drug ineffective [Unknown]
  - Drug ineffective [Unknown]
